FAERS Safety Report 15308870 (Version 2)
Quarter: 2018Q3

REPORT INFORMATION
  Report Type: Spontaneous
  Country: US (occurrence: US)
  Receive Date: 20180822
  Receipt Date: 20180907
  Transmission Date: 20181010
  Serious: Yes (Hospitalization)
  Sender: FDA-Public Use
  Company Number: US-BIOGEN-2018BI00622517

PATIENT
  Age: 5 Year
  Sex: Female

DRUGS (4)
  1. SPINRAZA [Suspect]
     Active Substance: NUSINERSEN
     Indication: SPINAL MUSCULAR ATROPHY
     Route: 065
  2. PULMICORT TURBUHALER [Concomitant]
     Active Substance: BUDESONIDE
     Indication: PRODUCT USED FOR UNKNOWN INDICATION
     Route: 065
  3. TYLENOL [Concomitant]
     Active Substance: ACETAMINOPHEN
     Indication: PYREXIA
     Route: 065
  4. IRON [Concomitant]
     Active Substance: IRON
     Indication: PRODUCT USED FOR UNKNOWN INDICATION
     Route: 065

REACTIONS (2)
  - Bronchial secretion retention [Recovered/Resolved]
  - Blood glucose increased [Recovered/Resolved]

NARRATIVE: CASE EVENT DATE: 20180811
